FAERS Safety Report 23509408 (Version 1)
Quarter: 2024Q1

REPORT INFORMATION
  Report Type: Spontaneous
  Country: ZA (occurrence: ZA)
  Receive Date: 20240210
  Receipt Date: 20240210
  Transmission Date: 20240410
  Serious: Yes (Other)
  Sender: FDA-Public Use
  Company Number: ZA-MACLEODS PHARMACEUTICALS US LTD-MAC2024045697

PATIENT

DRUGS (1)
  1. QUETIAPINE FUMARATE ER [Suspect]
     Active Substance: QUETIAPINE FUMARATE
     Indication: Schizophrenia
     Dosage: 3 DOSAGE FORM, QD
     Route: 065

REACTIONS (2)
  - Schizophrenia [Unknown]
  - Drug ineffective [Unknown]
